FAERS Safety Report 9319051 (Version 3)
Quarter: 2013Q2

REPORT INFORMATION
  Report Type: Spontaneous
  Country: US (occurrence: None)
  Receive Date: 20130524
  Receipt Date: 20130626
  Transmission Date: 20140414
  Serious: Yes (Hospitalization)
  Sender: FDA-Public Use
  Company Number: JPI-P-031863

PATIENT
  Age: 74 Year
  Sex: Female

DRUGS (14)
  1. XYREM [Suspect]
     Indication: NARCOLEPSY
     Dosage: 4.5 GM (2.25 GM,2 IN 1 D)?
     Route: 048
     Dates: start: 20120726, end: 2012
  2. ASPIRIN AND DIPYRIDAMOLE (UNKNOWN) [Concomitant]
  3. HYDROCODONE (UNKNOWN) [Concomitant]
  4. DULOXETINE HYDROCHLORIDE (UNKNOWN) [Concomitant]
  5. LEVOTHYROXINE (UNKNOWN) [Concomitant]
  6. AZELASTINE HYDROCHLORIDE (UNKNOWN) [Concomitant]
  7. BETAHISTINE (UNKNOWN) [Concomitant]
  8. TRIAMTERENE (UNKNOWN) [Concomitant]
  9. ESOMEPRAZOLE (UNKNOWN) [Concomitant]
  10. MULTIVITAMINS (UNKNOWN) [Concomitant]
  11. CALCIUM (UNKNOWN) [Concomitant]
  12. FISH OIL (UNKNOWN) [Concomitant]
  13. FOLIC ACID B COMPLEX (UNKNOWN) [Concomitant]
  14. POLYETHELENE GLYCOL 3350 (UNKNOWN) [Concomitant]

REACTIONS (4)
  - Gait disturbance [None]
  - Dyskinesia [None]
  - Muscle spasms [None]
  - Thrombosis [None]
